FAERS Safety Report 11193934 (Version 1)
Quarter: 2015Q2

REPORT INFORMATION
  Report Type: Spontaneous
  Country: US (occurrence: US)
  Receive Date: 20150616
  Receipt Date: 20150616
  Transmission Date: 20150821
  Serious: No
  Sender: FDA-Public Use
  Company Number: US-LPDUSPRD-20140763

PATIENT

DRUGS (1)
  1. CYANOCOBALAMIN INJECTION, USP (0031-25) [Suspect]
     Active Substance: CYANOCOBALAMIN
     Dosage: DOSE NOT PROVIDED
     Route: 065

REACTIONS (1)
  - Chromaturia [Unknown]
